FAERS Safety Report 7025446-7 (Version None)
Quarter: 2010Q4

REPORT INFORMATION
  Report Type: 
  Country: None (occurrence: None)
  Receive Date: 20101001
  Receipt Date: 20100929
  Transmission Date: 20110411
  Serious: Yes (Other)
  Sender: FDA-Public Use
  Company Number: CHPA2010US15397

PATIENT
  Age: 40 Year
  Sex: Male
  Weight: 99.773 kg

DRUGS (1)
  1. PRIVATE LABEL (NCH) [Suspect]
     Indication: SMOKING CESSATION THERAPY
     Dosage: 21 MG, QD
     Route: 062
     Dates: start: 20100926

REACTIONS (3)
  - FEELING ABNORMAL [None]
  - HALLUCINATION, AUDITORY [None]
  - HEADACHE [None]
